FAERS Safety Report 23040329 (Version 1)
Quarter: 2023Q4

REPORT INFORMATION
  Report Type: Spontaneous
  Country: PL (occurrence: PL)
  Receive Date: 20231006
  Receipt Date: 20231006
  Transmission Date: 20240110
  Serious: Yes (Death, Other)
  Sender: FDA-Public Use
  Company Number: PL-SANDOZ-SDZ2023PL033384

PATIENT
  Age: 49 Year
  Sex: Male

DRUGS (64)
  1. DOXORUBICIN HYDROCHLORIDE [Suspect]
     Active Substance: DOXORUBICIN HYDROCHLORIDE
     Indication: Diffuse large B-cell lymphoma
     Dosage: 1ST CYCLE
     Route: 065
     Dates: start: 20201215, end: 20201218
  2. DOXORUBICIN HYDROCHLORIDE [Suspect]
     Active Substance: DOXORUBICIN HYDROCHLORIDE
     Dosage: 2ND CYCLE
     Route: 065
     Dates: start: 20210105, end: 20210106
  3. DOXORUBICIN HYDROCHLORIDE [Suspect]
     Active Substance: DOXORUBICIN HYDROCHLORIDE
     Dosage: 3RD CYCLE
     Route: 065
     Dates: start: 20210129, end: 20210130
  4. DOXORUBICIN HYDROCHLORIDE [Suspect]
     Active Substance: DOXORUBICIN HYDROCHLORIDE
     Dosage: 4TH CYCLE
     Route: 065
     Dates: start: 20210219, end: 20210220
  5. DOXORUBICIN HYDROCHLORIDE [Suspect]
     Active Substance: DOXORUBICIN HYDROCHLORIDE
     Dosage: 5TH CYCLE
     Route: 065
     Dates: start: 20210315, end: 20210316
  6. DOXORUBICIN HYDROCHLORIDE [Suspect]
     Active Substance: DOXORUBICIN HYDROCHLORIDE
     Dosage: 6TH CYCLE
     Route: 065
     Dates: start: 20210406, end: 20210407
  7. DOXORUBICIN HYDROCHLORIDE [Suspect]
     Active Substance: DOXORUBICIN HYDROCHLORIDE
     Dosage: 7TH CYCLE
     Route: 065
     Dates: start: 20210429
  8. DOXORUBICIN HYDROCHLORIDE [Suspect]
     Active Substance: DOXORUBICIN HYDROCHLORIDE
     Dosage: 8TH CYCLE
     Route: 065
     Dates: start: 20210520, end: 20210521
  9. RITUXIMAB [Suspect]
     Active Substance: RITUXIMAB
     Indication: Diffuse large B-cell lymphoma
     Dosage: 1ST CYCLE
     Route: 065
     Dates: start: 20201215, end: 20201218
  10. RITUXIMAB [Suspect]
     Active Substance: RITUXIMAB
     Dosage: 2ND CYCLE
     Route: 065
     Dates: start: 20210105, end: 20210106
  11. RITUXIMAB [Suspect]
     Active Substance: RITUXIMAB
     Dosage: 3RD CYCLE
     Route: 065
     Dates: start: 20210129, end: 20210130
  12. RITUXIMAB [Suspect]
     Active Substance: RITUXIMAB
     Dosage: 4TH CYCLE
     Route: 065
     Dates: start: 20210219, end: 20210220
  13. RITUXIMAB [Suspect]
     Active Substance: RITUXIMAB
     Dosage: 5TH CYCLE
     Route: 065
     Dates: start: 20210315, end: 20210316
  14. RITUXIMAB [Suspect]
     Active Substance: RITUXIMAB
     Dosage: 6TH CYCLE
     Route: 065
     Dates: start: 20210406, end: 20210407
  15. RITUXIMAB [Suspect]
     Active Substance: RITUXIMAB
     Dosage: 7TH CYCLE
     Route: 065
     Dates: start: 20210429
  16. RITUXIMAB [Suspect]
     Active Substance: RITUXIMAB
     Dosage: 8TH CYCLE
     Route: 065
     Dates: start: 20210520, end: 20210521
  17. RITUXIMAB [Suspect]
     Active Substance: RITUXIMAB
     Dosage: UNK
     Route: 065
     Dates: start: 20220607, end: 20220609
  18. RITUXIMAB [Suspect]
     Active Substance: RITUXIMAB
     Dosage: UNK
     Route: 065
     Dates: start: 20220702, end: 20220704
  19. RITUXIMAB [Suspect]
     Active Substance: RITUXIMAB
     Dosage: UNK
     Route: 065
     Dates: start: 20220916, end: 20220918
  20. RITUXIMAB [Suspect]
     Active Substance: RITUXIMAB
     Dosage: UNK
     Route: 065
     Dates: start: 20221007, end: 20221008
  21. RITUXIMAB [Suspect]
     Active Substance: RITUXIMAB
     Dosage: UNK
     Route: 065
     Dates: start: 20221127, end: 20221129
  22. CYTARABINE [Suspect]
     Active Substance: CYTARABINE
     Indication: Diffuse large B-cell lymphoma
     Dosage: UNK
     Route: 065
     Dates: start: 20220607, end: 20220609
  23. CYTARABINE [Suspect]
     Active Substance: CYTARABINE
     Dosage: UNK
     Route: 065
     Dates: start: 20220702, end: 20220704
  24. DEXAMETHASONE [Suspect]
     Active Substance: DEXAMETHASONE
     Indication: Diffuse large B-cell lymphoma
     Dosage: UNK
     Route: 065
     Dates: start: 20220607, end: 20220609
  25. DEXAMETHASONE [Suspect]
     Active Substance: DEXAMETHASONE
     Dosage: UNK
     Route: 065
     Dates: start: 20220702, end: 20220704
  26. POLATUZUMAB VEDOTIN [Suspect]
     Active Substance: POLATUZUMAB VEDOTIN
     Indication: Diffuse large B-cell lymphoma
     Dosage: UNK
     Route: 065
  27. KYMRIAH [Suspect]
     Active Substance: TISAGENLECLEUCEL
     Indication: Diffuse large B-cell lymphoma
     Dosage: UNK
     Route: 065
     Dates: start: 20221207
  28. BENDAMUSTINE [Suspect]
     Active Substance: BENDAMUSTINE
     Indication: Diffuse large B-cell lymphoma
     Dosage: UNK
     Route: 065
     Dates: start: 20220916, end: 20220918
  29. BENDAMUSTINE [Suspect]
     Active Substance: BENDAMUSTINE
     Dosage: UNK
     Route: 065
     Dates: start: 20221007, end: 20221008
  30. BENDAMUSTINE [Suspect]
     Active Substance: BENDAMUSTINE
     Dosage: UNK
     Route: 065
     Dates: start: 20221127, end: 20221128
  31. PREDNISONE [Suspect]
     Active Substance: PREDNISONE
     Indication: Diffuse large B-cell lymphoma
     Dosage: 1ST CYCLE
     Route: 065
     Dates: start: 20201215, end: 20201218
  32. PREDNISONE [Suspect]
     Active Substance: PREDNISONE
     Dosage: 2ND CYCLE
     Route: 065
     Dates: start: 20210105, end: 20210106
  33. PREDNISONE [Suspect]
     Active Substance: PREDNISONE
     Dosage: 3RD CYCLE
     Route: 065
     Dates: start: 20210129, end: 20210130
  34. PREDNISONE [Suspect]
     Active Substance: PREDNISONE
     Dosage: 4TH CYCLE
     Route: 065
     Dates: start: 20210219, end: 20210220
  35. PREDNISONE [Suspect]
     Active Substance: PREDNISONE
     Dosage: 5TH CYCLE
     Route: 065
     Dates: start: 20210315, end: 20210316
  36. PREDNISONE [Suspect]
     Active Substance: PREDNISONE
     Dosage: 6TH CYCLE
     Route: 065
     Dates: start: 20210406, end: 20210407
  37. PREDNISONE [Suspect]
     Active Substance: PREDNISONE
     Dosage: 7TH CYCLE
     Route: 065
     Dates: start: 20210429
  38. PREDNISONE [Suspect]
     Active Substance: PREDNISONE
     Dosage: 8TH CYCLE
     Route: 065
     Dates: start: 20210520, end: 20210521
  39. CISPLATIN [Suspect]
     Active Substance: CISPLATIN
     Indication: Diffuse large B-cell lymphoma
     Dosage: UNK
     Route: 065
     Dates: start: 20220607, end: 20220609
  40. CISPLATIN [Suspect]
     Active Substance: CISPLATIN
     Dosage: UNK
     Route: 065
     Dates: start: 20220702, end: 20220704
  41. VINCRISTINE [Suspect]
     Active Substance: VINCRISTINE
     Indication: Diffuse large B-cell lymphoma
     Dosage: 1ST CYCLE
     Route: 065
     Dates: start: 20201215, end: 20201218
  42. VINCRISTINE [Suspect]
     Active Substance: VINCRISTINE
     Dosage: 2ND CYCLE
     Route: 065
     Dates: start: 20210105, end: 20210106
  43. VINCRISTINE [Suspect]
     Active Substance: VINCRISTINE
     Dosage: 3RD CYCLE
     Route: 065
     Dates: start: 20210129, end: 20210130
  44. VINCRISTINE [Suspect]
     Active Substance: VINCRISTINE
     Dosage: 4THC CYCLE
     Route: 065
     Dates: start: 20210219, end: 20210220
  45. VINCRISTINE [Suspect]
     Active Substance: VINCRISTINE
     Dosage: 5TH CYCLE
     Route: 065
     Dates: start: 20210315, end: 20210316
  46. VINCRISTINE [Suspect]
     Active Substance: VINCRISTINE
     Dosage: 6TH CYCLE
     Route: 065
     Dates: start: 20210406, end: 20210407
  47. VINCRISTINE [Suspect]
     Active Substance: VINCRISTINE
     Dosage: 7TH CYCLE
     Route: 065
     Dates: start: 20210429
  48. VINCRISTINE [Suspect]
     Active Substance: VINCRISTINE
     Dosage: 8TH CYCLE
     Route: 065
     Dates: start: 20210520, end: 20210521
  49. CYCLOPHOSPHAMIDE [Suspect]
     Active Substance: CYCLOPHOSPHAMIDE
     Indication: Diffuse large B-cell lymphoma
     Dosage: 1ST CYCLE
     Route: 065
     Dates: start: 20201215, end: 20201218
  50. CYCLOPHOSPHAMIDE [Suspect]
     Active Substance: CYCLOPHOSPHAMIDE
     Dosage: 2ND CYCLE
     Route: 065
     Dates: start: 20210105, end: 20210106
  51. CYCLOPHOSPHAMIDE [Suspect]
     Active Substance: CYCLOPHOSPHAMIDE
     Dosage: 3RD CYCLE
     Route: 065
     Dates: start: 20210129, end: 20210130
  52. CYCLOPHOSPHAMIDE [Suspect]
     Active Substance: CYCLOPHOSPHAMIDE
     Dosage: 4TH CYCLE
     Route: 065
     Dates: start: 20210219, end: 20210220
  53. CYCLOPHOSPHAMIDE [Suspect]
     Active Substance: CYCLOPHOSPHAMIDE
     Dosage: 5TH CYCLE
     Route: 065
     Dates: start: 20210315, end: 20210316
  54. CYCLOPHOSPHAMIDE [Suspect]
     Active Substance: CYCLOPHOSPHAMIDE
     Dosage: 6TH CYCLE
     Route: 065
     Dates: start: 20210406, end: 20210407
  55. CYCLOPHOSPHAMIDE [Suspect]
     Active Substance: CYCLOPHOSPHAMIDE
     Dosage: 7TH CYCLE
     Route: 065
     Dates: start: 20210429
  56. CYCLOPHOSPHAMIDE [Suspect]
     Active Substance: CYCLOPHOSPHAMIDE
     Dosage: 8TH CYCLE
     Route: 065
     Dates: start: 20210520, end: 20210521
  57. METHOTREXATE [Suspect]
     Active Substance: METHOTREXATE
     Indication: Diffuse large B-cell lymphoma
     Dosage: 1ST CYCLE
     Route: 065
     Dates: start: 20201215, end: 20201218
  58. METHOTREXATE [Suspect]
     Active Substance: METHOTREXATE
     Dosage: 2ND CYCLE
     Route: 065
     Dates: start: 20210105, end: 20210106
  59. METHOTREXATE [Suspect]
     Active Substance: METHOTREXATE
     Dosage: 3RD CYCLE
     Route: 065
     Dates: start: 20210129, end: 20210130
  60. METHOTREXATE [Suspect]
     Active Substance: METHOTREXATE
     Dosage: 4TH CYCLE
     Route: 065
     Dates: start: 20210219, end: 20210220
  61. METHOTREXATE [Suspect]
     Active Substance: METHOTREXATE
     Dosage: 5TH CYCLE
     Route: 065
     Dates: start: 20210315, end: 20210316
  62. METHOTREXATE [Suspect]
     Active Substance: METHOTREXATE
     Dosage: 6TH CYCLE
     Route: 065
     Dates: start: 20210406, end: 20210407
  63. METHOTREXATE [Suspect]
     Active Substance: METHOTREXATE
     Dosage: 7TH CYCLE
     Route: 065
     Dates: start: 20210429
  64. METHOTREXATE [Suspect]
     Active Substance: METHOTREXATE
     Dosage: 8TH CYCLE
     Route: 065
     Dates: start: 20210520, end: 20210521

REACTIONS (4)
  - Death [Fatal]
  - Immune effector cell-associated neurotoxicity syndrome [Recovered/Resolved]
  - Thrombocytopenia [Unknown]
  - Neoplasm recurrence [Unknown]

NARRATIVE: CASE EVENT DATE: 20230408
